FAERS Safety Report 5003227-3 (Version None)
Quarter: 2006Q2

REPORT INFORMATION
  Report Type: 
  Country: None (occurrence: None)
  Receive Date: 20060516
  Receipt Date: 20060510
  Transmission Date: 20061013
  Serious: Yes (Hospitalization, Other)
  Sender: FDA-Public Use
  Company Number: US-BRISTOL-MYERS SQUIBB COMPANY-13373436

PATIENT
  Age: 41 Year
  Sex: Male
  Weight: 53 kg

DRUGS (7)
  1. ERBITUX [Suspect]
     Indication: COLON CANCER METASTATIC
     Dosage: LOADING DOSE OF 640 MG INITIATED.  PATIENT EXPERIENCED ONSET OF EVENTS WITHIN 2 MINUTES.
     Route: 042
     Dates: start: 20060510, end: 20060510
  2. ACTIQ [Concomitant]
  3. AMBIEN [Concomitant]
  4. BENADRYL [Concomitant]
     Indication: PREMEDICATION
     Route: 042
     Dates: start: 20060510, end: 20060510
  5. DITROPAN [Concomitant]
  6. ELMIRON [Concomitant]
  7. ZOLOFT [Concomitant]

REACTIONS (6)
  - CHEST DISCOMFORT [None]
  - CHILLS [None]
  - DIZZINESS [None]
  - DYSPNOEA [None]
  - FLUSHING [None]
  - VOMITING [None]
